FAERS Safety Report 10064771 (Version 1)
Quarter: 2014Q2

REPORT INFORMATION
  Report Type: Spontaneous
  Country: EC (occurrence: EC)
  Receive Date: 20140408
  Receipt Date: 20140408
  Transmission Date: 20141212
  Serious: Yes (Other)
  Sender: FDA-Public Use
  Company Number: EC-BIOMARINAP-EC-2014-102958

PATIENT
  Sex: Female

DRUGS (1)
  1. ALDURAZYME [Suspect]
     Indication: MUCOPOLYSACCHARIDOSIS I
     Dosage: UNK, QW
     Route: 042
     Dates: start: 20100701

REACTIONS (4)
  - Hypertension [Unknown]
  - Urticaria [Unknown]
  - Eyelid oedema [Unknown]
  - Rash [Unknown]
